FAERS Safety Report 12707942 (Version 1)
Quarter: 2016Q3

REPORT INFORMATION
  Report Type: Spontaneous
  Country: JP (occurrence: JP)
  Receive Date: 20160901
  Receipt Date: 20160901
  Transmission Date: 20161109
  Serious: Yes (Death)
  Sender: FDA-Public Use
  Company Number: JP-PFM-JP-2016-2594

PATIENT
  Age: 61 Year
  Sex: Male

DRUGS (12)
  1. METHOTREXATE. [Suspect]
     Active Substance: METHOTREXATE
     Indication: ADENOCARCINOMA
     Dosage: CYCLICAL
     Route: 065
     Dates: start: 200711
  2. ENDOXAN [Suspect]
     Active Substance: CYCLOPHOSPHAMIDE
     Indication: ADENOCARCINOMA
     Dosage: CYCLICAL
     Route: 041
     Dates: start: 200412
  3. FARMORUBICIN [Suspect]
     Active Substance: EPIRUBICIN HYDROCHLORIDE
     Indication: ADENOCARCINOMA
     Dosage: CYCLICAL
     Route: 041
     Dates: start: 200412
  4. LEUPRORELIN [Suspect]
     Active Substance: LEUPROLIDE ACETATE
     Indication: ADENOCARCINOMA
     Dosage: UNK
     Route: 058
     Dates: start: 200901
  5. MITOMYCIN. [Suspect]
     Active Substance: MITOMYCIN
     Indication: ADENOCARCINOMA
     Dosage: CYCLICAL
     Route: 042
     Dates: start: 200711
  6. TAXOTERE [Suspect]
     Active Substance: DOCETAXEL
     Indication: ADENOCARCINOMA
     Dosage: CYCLICAL
     Route: 041
     Dates: start: 200505
  7. TAXOL [Suspect]
     Active Substance: PACLITAXEL
     Indication: ADENOCARCINOMA
     Dosage: CYCLICAL
     Route: 041
     Dates: start: 200601
  8. FLUOROURACIL. [Suspect]
     Active Substance: FLUOROURACIL
     Dosage: CYCLICAL
     Route: 041
     Dates: start: 200412
  9. NAVELBINE [Suspect]
     Active Substance: VINORELBINE TARTRATE
     Indication: ADENOCARCINOMA
     Dosage: CYCLICAL
     Route: 042
     Dates: start: 200705
  10. FLUOROURACIL. [Suspect]
     Active Substance: FLUOROURACIL
     Indication: ADENOCARCINOMA
     Dosage: CYCLICAL
     Route: 041
     Dates: start: 200403
  11. CISPLATIN. [Suspect]
     Active Substance: CISPLATIN
     Indication: ADENOCARCINOMA
     Dosage: CYCLICAL
     Route: 041
     Dates: start: 200403
  12. CASODEX [Suspect]
     Active Substance: BICALUTAMIDE
     Indication: ADENOCARCINOMA
     Dosage: UNK
     Route: 048
     Dates: start: 200901

REACTIONS (3)
  - Off label use [Unknown]
  - Cardiomyopathy [Fatal]
  - Product use issue [Unknown]
